FAERS Safety Report 5538014-0 (Version None)
Quarter: 2007Q4

REPORT INFORMATION
  Report Type: 
  Country: None (occurrence: None)
  Receive Date: 20071207
  Receipt Date: 20071112
  Transmission Date: 20080405
  Serious: No
  Sender: FDA-Public Use
  Company Number: US-BOEHRINGER INGELHEIM PHARMACEUTICALS, INC.-2007-BP-24519BP

PATIENT
  Sex: Female

DRUGS (2)
  1. MIRAPEX [Suspect]
     Indication: RESTLESS LEGS SYNDROME
  2. SINEMET [Concomitant]
     Indication: RESTLESS LEGS SYNDROME

REACTIONS (1)
  - DRUG INEFFECTIVE [None]
